FAERS Safety Report 16734857 (Version 2)
Quarter: 2019Q3

REPORT INFORMATION
  Report Type: Spontaneous
  Country: FR (occurrence: FR)
  Receive Date: 20190823
  Receipt Date: 20190909
  Transmission Date: 20191005
  Serious: Yes (Hospitalization)
  Sender: FDA-Public Use
  Company Number: FR-TAKEDA-2019TUS049178

PATIENT
  Age: 68 Year
  Sex: Male
  Weight: 95 kg

DRUGS (15)
  1. ELUDRIL                            /00133002/ [Concomitant]
     Active Substance: CHLORHEXIDINE GLUCONATE
     Indication: MUCOSITIS MANAGEMENT
     Dosage: UNK, TID
     Route: 061
     Dates: start: 20180918
  2. CARDENSIEL [Concomitant]
     Active Substance: BISOPROLOL FUMARATE
     Indication: ATRIAL TACHYCARDIA
     Dosage: 2.5 MILLIGRAM, QD
     Route: 048
  3. MELPHALAN. [Suspect]
     Active Substance: MELPHALAN
     Indication: PRODUCT USED FOR UNKNOWN INDICATION
     Dosage: 9 MILLIGRAM/SQ. METER
     Route: 048
     Dates: start: 20180821, end: 20190516
  4. PREDNISONE. [Suspect]
     Active Substance: PREDNISONE
     Indication: PRODUCT USED FOR UNKNOWN INDICATION
     Dosage: 60 MILLIGRAM/SQ. METER
     Route: 048
     Dates: start: 20180822, end: 20190808
  5. PARACETAMOL [Concomitant]
     Active Substance: ACETAMINOPHEN
     Indication: NECK PAIN
     Dosage: 1 GRAM
     Route: 048
     Dates: start: 20180828
  6. AMIODARONE [Concomitant]
     Active Substance: AMIODARONE
     Indication: ATRIAL TACHYCARDIA
     Dosage: 200 MILLIGRAM, QD
     Route: 048
     Dates: start: 20181002
  7. BORTEZOMIB. [Suspect]
     Active Substance: BORTEZOMIB
     Indication: PRODUCT USED FOR UNKNOWN INDICATION
     Dosage: 1.3 MILLIGRAM/SQ. METER, UNK
     Route: 058
     Dates: start: 20180821, end: 20190812
  8. DARATUMUMAB [Suspect]
     Active Substance: DARATUMUMAB
     Indication: PRODUCT USED FOR UNKNOWN INDICATION
     Dosage: 1800 MILLIGRAM
     Route: 065
     Dates: start: 20180821, end: 20190805
  9. REPAGLINIDE. [Concomitant]
     Active Substance: REPAGLINIDE
     Indication: TYPE 2 DIABETES MELLITUS
     Dosage: 5 MILLIGRAM, BID
     Route: 048
     Dates: start: 20190204
  10. PRIMPERAN [Concomitant]
     Active Substance: METOCLOPRAMIDE HYDROCHLORIDE
     Indication: NAUSEA
     Dosage: 10 MILLIGRAM
     Route: 048
  11. ARANESP [Concomitant]
     Active Substance: DARBEPOETIN ALFA
     Indication: ANAEMIA
     Dosage: 300 MICROGRAM, 1/WEEK
     Route: 058
     Dates: start: 20190401
  12. WELLVONE [Concomitant]
     Active Substance: ATOVAQUONE
     Indication: INFECTION PROPHYLAXIS
     Dosage: 5 MILLILITER, BID
     Route: 048
     Dates: start: 20190204
  13. SODIUM BICARBONATE. [Concomitant]
     Active Substance: SODIUM BICARBONATE
     Indication: MUCOSITIS MANAGEMENT
     Dosage: UNK, TID
     Route: 048
     Dates: start: 20180918
  14. LYRICA [Concomitant]
     Active Substance: PREGABALIN
     Indication: PERIPHERAL SENSORY NEUROPATHY
     Dosage: 75 MILLIGRAM, BID
     Route: 048
     Dates: start: 20190225
  15. ALLOPURINOL. [Concomitant]
     Active Substance: ALLOPURINOL
     Indication: PROPHYLAXIS
     Dosage: 200 MILLIGRAM, QD
     Route: 048
     Dates: start: 20180918

REACTIONS (1)
  - Diverticulitis [Not Recovered/Not Resolved]

NARRATIVE: CASE EVENT DATE: 20190810
